FAERS Safety Report 21411259 (Version 1)
Quarter: 2022Q4

REPORT INFORMATION
  Report Type: Spontaneous
  Country: DE (occurrence: DE)
  Receive Date: 20221005
  Receipt Date: 20221005
  Transmission Date: 20230112
  Serious: Yes (Hospitalization, Other)
  Sender: FDA-Public Use
  Company Number: DE-ANIPHARMA-2022-DE-000172

PATIENT
  Age: 54 Year
  Sex: Female
  Weight: 49 kg

DRUGS (20)
  1. CANDESARTAN CILEXETIL [Suspect]
     Active Substance: CANDESARTAN CILEXETIL
     Indication: Product used for unknown indication
     Dosage: 15 MG DAILY
     Route: 048
  2. PANTOPRAZOLE SODIUM [Concomitant]
     Active Substance: PANTOPRAZOLE SODIUM
     Dosage: 40 MG DAILY
     Route: 048
  3. SODIUM BICARBONATE [Concomitant]
     Active Substance: SODIUM BICARBONATE
     Dosage: 1 G, 1-1-1-0
     Route: 048
  4. ATORVASTATIN [Concomitant]
     Active Substance: ATORVASTATIN
     Dosage: 40 MG DAILY
     Route: 048
  5. SEVELAMER [Concomitant]
     Active Substance: SEVELAMER
     Dosage: 800 MG, 2-2-2-0
     Route: 048
  6. ALFACALCIDOL [Concomitant]
     Active Substance: ALFACALCIDOL
     Dosage: .25 UG DAILY
     Route: 048
  7. TORSEMIDE [Concomitant]
     Active Substance: TORSEMIDE
     Dosage: 200 MG DAILY
     Route: 048
  8. CHOLECALCIFEROL [Concomitant]
     Active Substance: CHOLECALCIFEROL
     Dosage: 20,000 IU, SATURDAYS
     Route: 048
  9. EPOETIN ALFA [Concomitant]
     Active Substance: ERYTHROPOIETIN
     Dosage: ON MONDAYS
     Route: 058
  10. CALCIUM ACETATE\MAGNESIUM CARBONATE [Concomitant]
     Active Substance: CALCIUM ACETATE\MAGNESIUM CARBONATE
     Dosage: 1-1-1-0
     Route: 048
  11. SELENASE [Concomitant]
     Dosage: 100 UG DAILY
     Route: 048
  12. INSULIN ASPART [Suspect]
     Active Substance: INSULIN ASPART
     Dosage: 300 IU/ 3 ML,6-6-6-0, PRE-FILLED SYRINGES
     Route: 058
  13. MILGAMMA [Concomitant]
     Dosage: 1-0-0-0
     Route: 048
  14. LERCANIDIPINE [Suspect]
     Active Substance: LERCANIDIPINE
     Dosage: 10 MG DAILY
     Route: 048
  15. NEBIVOLOL [Suspect]
     Active Substance: NEBIVOLOL
     Dosage: 5 MG, 1-0-1-0
     Route: 048
  16. INSULIN GLARGINE [Suspect]
     Active Substance: INSULIN GLARGINE
     Dosage: 300 IU / 3ML, 0-0-0-20 PRE-FILLED SYRINGES
     Route: 058
  17. CLONIDINE [Suspect]
     Active Substance: CLONIDINE
     Dosage: 75 ?G, 1-0-1-0
     Route: 048
  18. ALLOPURINOL [Concomitant]
     Active Substance: ALLOPURINOL
     Dosage: 100 MG DAILY
     Route: 048
  19. EPLERENONE [Concomitant]
     Active Substance: EPLERENONE
     Dosage: 25 MG DAILY
     Route: 048
  20. LEVOTHYROXINE [Concomitant]
     Active Substance: LEVOTHYROXINE
     Dosage: 88 ?G, 1-0-0-0
     Route: 048

REACTIONS (5)
  - Fall [Recovering/Resolving]
  - Pain [Recovering/Resolving]
  - Syncope [Recovering/Resolving]
  - Therapeutic drug monitoring analysis incorrectly performed [Unknown]
  - Therapeutic drug monitoring analysis not performed [Unknown]

NARRATIVE: CASE EVENT DATE: 20210312
